FAERS Safety Report 4319460-X (Version None)
Quarter: 2004Q1

REPORT INFORMATION
  Report Type: 
  Country: None (occurrence: None)
  Receive Date: 20040316
  Receipt Date: 20040131
  Transmission Date: 20041129
  Serious: Yes (Life-Threatening, Hospitalization)
  Sender: FDA-Public Use
  Company Number: D01200400330

PATIENT
  Age: 65 Year
  Sex: Male
  Weight: 82.5 kg

DRUGS (5)
  1. CISPLATIN [Suspect]
     Indication: SMALL CELL LUNG CANCER EXTENSIVE STAGE
     Dosage: 80 MG/M2 CONT - INTRAVENOUS NOS
     Route: 042
     Dates: start: 20040121, end: 20040121
  2. ETOPOSIDE [Suspect]
     Indication: SMALL CELL LUNG CANCER STAGE UNSPECIFIED
     Dosage: 120 MG/M2 GIVEN ON DAYS 1, 2 AND 3, IN A 30-MINUTE INFUSION) - INTRAVENOUS NOS
     Route: 042
     Dates: start: 20040121, end: 20040123
  3. ONDANSETRON HCL [Concomitant]
  4. DIPHENHYDRAMINE HCL [Concomitant]
  5. DEXAMETHASONE [Concomitant]

REACTIONS (12)
  - BETA HAEMOLYTIC STREPTOCOCCAL INFECTION [None]
  - COUGH [None]
  - DYSPHAGIA [None]
  - EMPYEMA [None]
  - FEBRILE NEUTROPENIA [None]
  - HAEMOTHORAX [None]
  - LEUKOPENIA [None]
  - PLEURAL EFFUSION [None]
  - PSEUDOMONAS INFECTION [None]
  - SPUTUM CULTURE POSITIVE [None]
  - STREPTOCOCCAL INFECTION [None]
  - THROMBOCYTOPENIA [None]
